FAERS Safety Report 7717026 (Version 4)
Quarter: 2014Q2

REPORT INFORMATION
  Report Type: Spontaneous
  Country: US (occurrence: US)
  Receive Date: 20101217
  Receipt Date: 20140522
  Transmission Date: 20141212
  Serious: Yes (Hospitalization)
  Sender: FDA-Public Use
  Company Number: US-B.I. PHARMACEUTICALS,INC./RIDGEFIELD-2010-BP-13648BP

PATIENT
  Age: 85 Year
  Sex: Male
  Weight: 61.23 kg

DRUGS (13)
  1. PRADAXA [Suspect]
     Indication: ATRIAL FIBRILLATION
     Dosage: 300 MG
     Route: 048
     Dates: start: 20101119, end: 20120823
  2. LISINOPRIL [Concomitant]
     Indication: HYPERTENSION
     Dosage: 20 MG
     Route: 065
  3. FUROSEMIDE [Concomitant]
     Indication: HYPERTENSION
     Route: 065
  4. ALLOPURINOL [Concomitant]
     Indication: GOUT
     Dosage: DAILY DOSE: 100 DAILY
     Route: 065
  5. LANOXIN [Concomitant]
     Dosage: 0.25 MG
     Route: 065
  6. TOPROL-XL [Concomitant]
     Indication: HYPERTENSION
     Dosage: 50 MG
     Route: 065
  7. SIMVASTATIN [Concomitant]
     Indication: HYPERLIPIDAEMIA
     Dosage: DAILY DOSE: 1/2 TABLET DAILY
     Route: 065
  8. ASPIRIN [Concomitant]
     Dosage: 81 MG
     Route: 065
  9. OCUVIT E-PRESER [Concomitant]
     Route: 065
  10. VITAMIN E [Concomitant]
     Route: 065
  11. FOSAMAX [Concomitant]
     Route: 065
  12. CALTRATE 600+ [Concomitant]
     Route: 065
  13. CENTRUM SILVER [Concomitant]
     Route: 065

REACTIONS (6)
  - Gastrointestinal haemorrhage [Unknown]
  - Haemorrhagic anaemia [Unknown]
  - Oesophageal pain [Recovered/Resolved]
  - Insomnia [Recovered/Resolved]
  - Dyspepsia [Recovered/Resolved]
  - Epistaxis [Unknown]
